FAERS Safety Report 14229729 (Version 2)
Quarter: 2017Q4

REPORT INFORMATION
  Report Type: Spontaneous
  Country: JP (occurrence: JP)
  Receive Date: 20171128
  Receipt Date: 20171204
  Transmission Date: 20180321
  Serious: Yes (Other)
  Sender: FDA-Public Use
  Company Number: PHJP2017JP034462

PATIENT
  Age: 88 Year
  Sex: Female
  Weight: 30 kg

DRUGS (1)
  1. EXELON PATCH [Suspect]
     Active Substance: RIVASTIGMINE
     Indication: PRODUCT USED FOR UNKNOWN INDICATION
     Dosage: UNK
     Route: 062

REACTIONS (3)
  - Atypical mycobacterial infection [Unknown]
  - Product packaging issue [Unknown]
  - Vomiting [Unknown]

NARRATIVE: CASE EVENT DATE: 20171122
